FAERS Safety Report 23773289 (Version 1)
Quarter: 2024Q2

REPORT INFORMATION
  Report Type: Spontaneous
  Country: US (occurrence: None)
  Receive Date: 20240422
  Receipt Date: 20240422
  Transmission Date: 20240715
  Serious: Yes (unspecified)
  Sender: FDA-Public Use
  Company Number: None

PATIENT
  Age: 70 Year
  Sex: Female

DRUGS (2)
  1. DUPIXENT [Suspect]
     Active Substance: DUPILUMAB
     Indication: Eczema herpeticum
     Dosage: OTHER FREQUENCY : EVERY 2 WEEKS;?
     Route: 058
  2. DUPIXENT [Concomitant]
     Active Substance: DUPILUMAB
     Dates: start: 20240422, end: 20240422

REACTIONS (3)
  - Chest pain [None]
  - Arthralgia [None]
  - Therapy cessation [None]

NARRATIVE: CASE EVENT DATE: 20240422
